FAERS Safety Report 7979305-3 (Version None)
Quarter: 2011Q4

REPORT INFORMATION
  Report Type: 
  Country: None (occurrence: None)
  Receive Date: 20111201
  Receipt Date: 20111117
  Transmission Date: 20120403
  Serious: Yes (Death, Life-Threatening, Hospitalization, Other)
  Sender: FDA-Public Use
  Company Number: 2011MA016594

PATIENT
  Sex: Female
  Weight: 54.4316 kg

DRUGS (28)
  1. NITROFURANTOIN [Concomitant]
  2. OMEPRAZOLE [Concomitant]
  3. LORAZEPAM [Concomitant]
  4. CELEBREX [Concomitant]
  5. DIOVAN [Concomitant]
  6. DOCUSATE [Concomitant]
  7. AZITHROMYCIN [Concomitant]
  8. CEPHALEXIN [Concomitant]
  9. CIPROFLOXACIN [Concomitant]
  10. POTASSIUM CHLORIDE [Concomitant]
  11. NIFEREX [Concomitant]
  12. NEXIUM [Concomitant]
  13. MOBIC [Concomitant]
  14. ISOSORBIDE DINITRATE [Concomitant]
  15. HYDROCODONE BITARTRATE [Concomitant]
  16. DIGOXIN [Suspect]
     Indication: CHRONIC OBSTRUCTIVE PULMONARY DISEASE
     Dosage: 0.125 MG;QD;PO
     Route: 048
     Dates: start: 20011207, end: 20071212
  17. TOPROL-XL [Concomitant]
  18. OXYCODONE HCL AND ACETAMINOPHEN [Concomitant]
  19. SULFAMETHOXAZOLE AND TRIMETHOPRIM DOUBLE STRENGTH [Concomitant]
  20. FERROUS SULFATE TAB [Concomitant]
  21. FUROSEMIDE [Concomitant]
  22. ALPRAZOLAM [Concomitant]
  23. ACETAMINOPHEN [Concomitant]
  24. AMBIEN [Concomitant]
  25. ULTRACET [Concomitant]
  26. LEVAQUIN [Concomitant]
  27. MINITRAN [Concomitant]
  28. NITROGLYCERIN [Concomitant]

REACTIONS (10)
  - MULTIPLE INJURIES [None]
  - ECONOMIC PROBLEM [None]
  - PRODUCT QUALITY ISSUE [None]
  - CARDIAC FAILURE CONGESTIVE [None]
  - TOXICITY TO VARIOUS AGENTS [None]
  - HEART INJURY [None]
  - ANXIETY [None]
  - PAIN [None]
  - MYOCARDIAL INFARCTION [None]
  - HEART RATE INCREASED [None]
